FAERS Safety Report 6495612-8 (Version None)
Quarter: 2009Q4

REPORT INFORMATION
  Report Type: 
  Country: None (occurrence: None)
  Receive Date: 20091214
  Receipt Date: 20090903
  Transmission Date: 20100525
  Serious: No
  Sender: FDA-Public Use
  Company Number: US-BRISTOL-MYERS SQUIBB COMPANY-14713424

PATIENT
  Age: 47 Year
  Sex: Male

DRUGS (3)
  1. ABILIFY [Suspect]
     Indication: DEPRESSION
     Dosage: INITIAL AT 2.5MG INC TO 5MG,7.5MG INTRPTED + RESTARTD AT 5 MG INC TO 10MG DEC TO 5MG ON 07/2008
     Route: 048
     Dates: start: 20071101, end: 20080201
  2. EFFEXOR [Suspect]
     Indication: DEPRESSION
     Dates: start: 20071101
  3. GEODON [Concomitant]

REACTIONS (2)
  - DRUG EFFECT DECREASED [None]
  - WEIGHT INCREASED [None]
